FAERS Safety Report 8772111 (Version 1)
Quarter: 2012Q4

REPORT INFORMATION
  Report Type: 
  Country: AU (occurrence: AU)
  Receive Date: 20120906
  Receipt Date: 20120906
  Transmission Date: 20130627
  Serious: Yes (Hospitalization)
  Sender: FDA-Public Use
  Company Number: AU-009507513-2012SP021375

PATIENT

DRUGS (5)
  1. VICTRELIS [Suspect]
     Indication: HEPATITIS C
     Dosage: 800 mg, TID
     Route: 048
     Dates: start: 20120222, end: 20120413
  2. VICTRELIS [Suspect]
     Dosage: UNK UNK, Unknown
     Dates: start: 20120419
  3. INTRONA [Suspect]
     Indication: HEPATITIS C
     Dosage: 180 Microgram, QW
     Route: 058
     Dates: start: 20120125, end: 20120413
  4. INTRONA [Suspect]
     Dosage: UNK UNK, Unknown
     Route: 065
     Dates: start: 20120419
  5. REBETOL [Suspect]
     Dosage: 600 mg, BID
     Route: 048
     Dates: start: 20120125

REACTIONS (1)
  - Sepsis [Unknown]
